FAERS Safety Report 4492720-8 (Version None)
Quarter: 2004Q4

REPORT INFORMATION
  Report Type: 
  Country: None (occurrence: None)
  Receive Date: 20041104
  Receipt Date: 20041029
  Transmission Date: 20050328
  Serious: Yes (Hospitalization)
  Sender: FDA-Public Use
  Company Number: 200420809GDDC

PATIENT
  Age: 67 Year
  Sex: Female

DRUGS (3)
  1. FLUDEX [Suspect]
     Route: 048
     Dates: start: 20040616, end: 20040906
  2. ATARAX [Concomitant]
  3. TENORMIN [Concomitant]

REACTIONS (4)
  - BLOOD POTASSIUM DECREASED [None]
  - HYPONATRAEMIA [None]
  - MENINGITIS TUBERCULOUS [None]
  - METABOLIC ENCEPHALOPATHY [None]
